FAERS Safety Report 23935266 (Version 1)
Quarter: 2024Q2

REPORT INFORMATION
  Report Type: Spontaneous
  Country: CA (occurrence: CA)
  Receive Date: 20240604
  Receipt Date: 20240604
  Transmission Date: 20240716
  Serious: Yes (Hospitalization)
  Sender: FDA-Public Use
  Company Number: CA-TEVA-VS-3202881

PATIENT
  Age: 89 Year
  Sex: Female

DRUGS (3)
  1. PREDNISONE [Suspect]
     Active Substance: PREDNISONE
     Indication: Product used for unknown indication
     Route: 048
  2. PREDNISONE [Suspect]
     Active Substance: PREDNISONE
     Indication: Product used for unknown indication
     Route: 048
  3. PREDNISONE [Suspect]
     Active Substance: PREDNISONE
     Indication: Product used for unknown indication
     Dosage: TAPER PREDNISONE BY 5MG EVERY 14 DAYS UNTIL SHE REACHED 30MG PO DAILY
     Route: 048

REACTIONS (6)
  - Cardiac failure congestive [Recovering/Resolving]
  - Epistaxis [Unknown]
  - Atrial fibrillation [Recovering/Resolving]
  - Blood creatinine increased [Unknown]
  - Microscopic polyangiitis [Unknown]
  - Swelling face [Unknown]

NARRATIVE: CASE EVENT DATE: 20240101
